FAERS Safety Report 10578720 (Version 2)
Quarter: 2014Q4

REPORT INFORMATION
  Report Type: Spontaneous
  Country: US (occurrence: US)
  Receive Date: 20141112
  Receipt Date: 20141217
  Transmission Date: 20150529
  Serious: Yes (Other)
  Sender: FDA-Public Use
  Company Number: US-ELI_LILLY_AND_COMPANY-US201411000874

PATIENT
  Sex: Female
  Weight: 63.49 kg

DRUGS (2)
  1. CYMBALTA [Suspect]
     Active Substance: DULOXETINE HYDROCHLORIDE
     Indication: NEURALGIA
     Dosage: 60MG, ONCE DAILY
     Route: 048
     Dates: start: 20141003, end: 20141120
  2. CYMBALTA [Suspect]
     Active Substance: DULOXETINE HYDROCHLORIDE
     Indication: BRACHIAL PLEXOPATHY

REACTIONS (5)
  - Candida infection [Recovering/Resolving]
  - Off label use [Recovering/Resolving]
  - Blister [Recovering/Resolving]
  - Pancreatic carcinoma [Recovering/Resolving]
  - Diabetes mellitus [Recovering/Resolving]
